FAERS Safety Report 7347786-4 (Version None)
Quarter: 2011Q1

REPORT INFORMATION
  Report Type: 
  Country: None (occurrence: None)
  Receive Date: 20110302
  Receipt Date: 20110222
  Transmission Date: 20110831
  Serious: No
  Sender: FDA-Public Use
  Company Number: 201102026

PATIENT
  Age: 64 Year
  Sex: Male
  Weight: 78.9259 kg

DRUGS (2)
  1. TESTIM (TESTOSTERONE) [Suspect]
     Indication: BLOOD TESTOSTERONE DECREASED
     Dosage: 1 IN 1 D, TRANSDERMAL
     Route: 062
     Dates: start: 20101125, end: 20101220
  2. LITHIUM (LITHIUM) [Concomitant]

REACTIONS (3)
  - SHOPLIFTING [None]
  - AGGRESSION [None]
  - PERSONALITY CHANGE [None]
